FAERS Safety Report 5879604-5 (Version None)
Quarter: 2008Q3

REPORT INFORMATION
  Report Type: 
  Country: None (occurrence: None)
  Receive Date: 20080912
  Receipt Date: 20080909
  Transmission Date: 20090109
  Serious: Yes (Hospitalization)
  Sender: FDA-Public Use
  Company Number: US-AVENTIS-200814274US

PATIENT
  Sex: Female
  Weight: 77.27 kg

DRUGS (26)
  1. LANTUS [Suspect]
  2. LANTUS [Suspect]
  3. LANTUS [Suspect]
     Dates: start: 20080701
  4. LANTUS [Suspect]
     Dates: start: 20080810
  5. CATAPRES                           /00171101/ [Concomitant]
     Route: 061
  6. LASIX [Concomitant]
  7. LASIX [Concomitant]
  8. COLACE [Concomitant]
  9. PEPCID [Concomitant]
  10. NEXIUM [Concomitant]
  11. SPIRONOLACTONE [Concomitant]
  12. LEVOTHYROXINE SODIUM [Concomitant]
  13. TEKTURNA [Concomitant]
  14. SLOW-FE                            /00023503/ [Concomitant]
     Dosage: DOSE: UNK
  15. POTASSIUM CHLORIDE [Concomitant]
     Route: 048
  16. BENADRYL [Concomitant]
  17. ONDANSETRON HCL [Concomitant]
     Indication: NAUSEA
  18. METOLAZONE [Concomitant]
  19. NYSTATIN [Concomitant]
  20. VASOTEC                            /00935901/ [Concomitant]
  21. TIAZAC                             /00489702/ [Concomitant]
  22. COZAAR [Concomitant]
  23. METFORMIN HCL [Concomitant]
  24. GLIPIZIDE [Concomitant]
  25. SLOW-K [Concomitant]
     Dosage: DOSE: UNK
  26. AMBIEN [Concomitant]

REACTIONS (12)
  - BLOOD GLUCOSE DECREASED [None]
  - BLOOD GLUCOSE INCREASED [None]
  - BLOOD POTASSIUM DECREASED [None]
  - BLOOD SODIUM DECREASED [None]
  - ERUCTATION [None]
  - HOT FLUSH [None]
  - HYPERHIDROSIS [None]
  - INFECTION [None]
  - INSOMNIA [None]
  - PRURITUS [None]
  - PULMONARY OEDEMA [None]
  - TREMOR [None]
